FAERS Safety Report 23145126 (Version 1)
Quarter: 2023Q4

REPORT INFORMATION
  Report Type: Spontaneous
  Country: US (occurrence: US)
  Receive Date: 20231103
  Receipt Date: 20231103
  Transmission Date: 20240109
  Serious: No
  Sender: FDA-Public Use
  Company Number: US-BRISTOL-MYERS SQUIBB COMPANY-2023-157596

PATIENT
  Age: 74 Year
  Sex: Female

DRUGS (1)
  1. REVLIMID [Suspect]
     Active Substance: LENALIDOMIDE
     Indication: Plasma cell myeloma
     Dosage: ONCE ON MONDAY, WEDNESDAY AND FRIDAY OF EACH WEEK FOR 28 DAYS
     Route: 048
     Dates: start: 202306

REACTIONS (2)
  - Ocular hyperaemia [Unknown]
  - Off label use [Unknown]
